FAERS Safety Report 26083584 (Version 1)
Quarter: 2025Q4

REPORT INFORMATION
  Report Type: Spontaneous
  Country: GB (occurrence: GB)
  Receive Date: 20251124
  Receipt Date: 20251124
  Transmission Date: 20260117
  Serious: Yes (Other)
  Sender: GALPHARM INTERNATIONAL
  Company Number: GB-MHRA-TPP38644142C10208816YC1762778886857

PATIENT
  Age: 10 Year
  Sex: Female
  Weight: 11 kg

DRUGS (4)
  1. IBUPROFEN [Suspect]
     Active Substance: IBUPROFEN
     Indication: Ill-defined disorder
     Dosage: 100MG/5ML
     Route: 065
  2. PENICILLIN V [Concomitant]
     Active Substance: PENICILLIN V
     Indication: Ill-defined disorder
     Dosage: 5 ML, 6 HRS
     Route: 065
  3. DERMOL [BENZALKONIUM CHLORIDE;CHLORHEXIDINE HYDROCHLORIDE;ISOPROPYL MY [Concomitant]
     Indication: Ill-defined disorder
     Dosage: 1-2 CAPFULS IN BATH
     Route: 065
     Dates: start: 20171019
  4. ISOPROPYL MYRISTATE\MINERAL OIL [Concomitant]
     Active Substance: ISOPROPYL MYRISTATE\MINERAL OIL
     Indication: Ill-defined disorder
     Dosage: TO USE INSTEAD OF SOAP
     Route: 065
     Dates: start: 20171019

REACTIONS (1)
  - Angioedema [Recovered/Resolved]
